FAERS Safety Report 7203451-5 (Version None)
Quarter: 2010Q4

REPORT INFORMATION
  Report Type: 
  Country: None (occurrence: None)
  Receive Date: 20101230
  Receipt Date: 20101220
  Transmission Date: 20110411
  Serious: Yes (Hospitalization)
  Sender: FDA-Public Use
  Company Number: NL-ELI_LILLY_AND_COMPANY-NL201011006448

PATIENT
  Sex: Male
  Weight: 86.5 kg

DRUGS (9)
  1. PEMETREXED [Suspect]
     Indication: NON-SMALL CELL LUNG CANCER STAGE III
     Dosage: 950 MG, UNKNOWN
     Route: 042
     Dates: start: 20101122
  2. CISPLATIN [Suspect]
     Indication: NON-SMALL CELL LUNG CANCER STAGE III
     Dosage: 140 MG, UNKNOWN
     Route: 042
     Dates: start: 20101122
  3. RADIATION [Suspect]
     Indication: NON-SMALL CELL LUNG CANCER STAGE III
     Dosage: 2 GY, DAILY (1/D)
     Dates: start: 20101122
  4. FOLIC ACID [Concomitant]
     Indication: PROPHYLAXIS
     Dates: start: 20101016
  5. VITAMIN B-12 [Concomitant]
     Indication: PROPHYLAXIS
     Dates: start: 20101117
  6. DEXAMETHASONE [Concomitant]
     Indication: PROPHYLAXIS
     Dates: start: 20101121, end: 20101123
  7. ACETAMINOPHEN AND TRAMADOL HCL [Concomitant]
     Indication: PAIN
     Dates: start: 20101108
  8. DALTEPARIN SODIUM [Concomitant]
     Indication: PROPHYLAXIS
     Dates: start: 20101001
  9. LATANOPROST W/TIMOLOL [Concomitant]
     Indication: GLAUCOMA
     Dates: start: 19850101

REACTIONS (1)
  - PLEURAL EFFUSION [None]
